FAERS Safety Report 6679244-4 (Version None)
Quarter: 2010Q2

REPORT INFORMATION
  Report Type: 
  Country: None (occurrence: None)
  Receive Date: 20100413
  Receipt Date: 20100405
  Transmission Date: 20101027
  Serious: Yes (Other)
  Sender: FDA-Public Use
  Company Number: US-BAYER-201015281NA

PATIENT
  Age: 62 Year
  Sex: Male

DRUGS (2)
  1. FLUDARA [Suspect]
     Indication: CHRONIC LYMPHOCYTIC LEUKAEMIA
     Dosage: TOTAL DAILY DOSE: 50 MG
     Dates: start: 20060605, end: 20061201
  2. RITUXIMAB [Concomitant]
     Dates: start: 20060601, end: 20061201

REACTIONS (3)
  - AUTOIMMUNE NEUTROPENIA [None]
  - AUTOIMMUNE THROMBOCYTOPENIA [None]
  - HAEMOLYTIC ANAEMIA [None]
